FAERS Safety Report 12241997 (Version 3)
Quarter: 2016Q2

REPORT INFORMATION
  Report Type: Spontaneous
  Country: EG (occurrence: EG)
  Receive Date: 20160406
  Receipt Date: 20160413
  Transmission Date: 20160815
  Serious: Yes (Other)
  Sender: FDA-Public Use
  Company Number: EG-IPSEN BIOPHARMACEUTICALS, INC.-2016-02544

PATIENT

DRUGS (2)
  1. DYSPORT [Suspect]
     Active Substance: ABOBOTULINUMTOXINA
     Indication: GASTRECTOMY
     Route: 030
  2. DYSPORT [Suspect]
     Active Substance: ABOBOTULINUMTOXINA
     Indication: PRODUCT USE ISSUE

REACTIONS (8)
  - Post procedural haemorrhage [Unknown]
  - Therapeutic response unexpected [Unknown]
  - Abdominal pain upper [Recovered/Resolved]
  - Chronic gastritis [Recovered/Resolved]
  - Pyrexia [Recovered/Resolved]
  - Reflux gastritis [Recovered/Resolved]
  - Catheter site haemorrhage [Recovering/Resolving]
  - Deep vein thrombosis [Recovered/Resolved]
